FAERS Safety Report 24278276 (Version 1)
Quarter: 2024Q3

REPORT INFORMATION
  Report Type: Spontaneous
  Country: US (occurrence: None)
  Receive Date: 20240830
  Receipt Date: 20240830
  Transmission Date: 20241016
  Serious: Yes (Hospitalization)
  Sender: Public
  Company Number: None

PATIENT
  Age: 12 Month
  Sex: Male

DRUGS (1)
  1. VIGABATRIN [Suspect]
     Active Substance: VIGABATRIN
     Indication: Seizure
     Dosage: FREQUENCY : TWICE A DAY;?OTHER ROUTE : GTUBE;?
     Route: 050
     Dates: start: 202403

REACTIONS (1)
  - Vomiting [None]

NARRATIVE: CASE EVENT DATE: 20240405
